FAERS Safety Report 8890715 (Version 1)
Quarter: 2012Q4

REPORT INFORMATION
  Report Type: 
  Country: CN (occurrence: CN)
  Receive Date: 20121107
  Receipt Date: 20121107
  Transmission Date: 20130627
  Serious: Yes (Hospitalization)
  Sender: FDA-Public Use
  Company Number: CN-BAYER-2012-115140

PATIENT
  Age: 78 Year
  Sex: Female
  Weight: 55 kg

DRUGS (1)
  1. ACETYLSALICYLIC ACID (} 100 MG) [Suspect]
     Indication: COAGULATION DISORDER NOS
     Dosage: 100 mg, QD
     Route: 048
     Dates: start: 20110113, end: 20110120

REACTIONS (4)
  - Prothrombin time abnormal [Recovering/Resolving]
  - Coagulation time prolonged [Recovering/Resolving]
  - Pelvic congestion [Recovering/Resolving]
  - Haematoma [Recovering/Resolving]
